FAERS Safety Report 24056298 (Version 1)
Quarter: 2024Q3

REPORT INFORMATION
  Report Type: Spontaneous
  Country: GR (occurrence: None)
  Receive Date: 20240705
  Receipt Date: 20240705
  Transmission Date: 20241017
  Serious: Yes (Other)
  Sender: ASTRAZENECA
  Company Number: 2024A153938

PATIENT
  Age: 70 Year
  Sex: Female

DRUGS (1)
  1. OLAPARIB [Suspect]
     Active Substance: OLAPARIB
     Indication: Sarcoma
     Route: 048

REACTIONS (3)
  - Malignant neoplasm progression [Unknown]
  - Therapeutic response unexpected [Unknown]
  - Off label use [Unknown]
